FAERS Safety Report 10307546 (Version 2)
Quarter: 2014Q4

REPORT INFORMATION
  Report Type: Spontaneous
  Country: HU (occurrence: HU)
  Receive Date: 20140716
  Receipt Date: 20141022
  Transmission Date: 20150528
  Serious: Yes (Hospitalization, Other)
  Sender: FDA-Public Use
  Company Number: HU-009507513-1407HUN004737

PATIENT
  Age: 59 Year
  Sex: Female
  Weight: 57.5 kg

DRUGS (8)
  1. VICTRELIS [Suspect]
     Active Substance: BOCEPREVIR
     Indication: HEPATITIS C
     Dosage: 800 MG, TID
     Route: 048
     Dates: start: 201306, end: 201402
  2. REBETOL [Suspect]
     Active Substance: RIBAVIRIN
     Dosage: 600MG, UNK, ON WEEK 40TH
     Route: 048
     Dates: start: 2014
  3. REBETOL [Suspect]
     Active Substance: RIBAVIRIN
     Dosage: DAILY DOSAGE: 600 MG, QD
     Route: 048
     Dates: start: 20130613, end: 20140515
  4. PEGINTRON [Suspect]
     Active Substance: PEGINTERFERON ALFA-2B
     Indication: HEPATITIS C
     Dosage: 80 MICROGRAM, QW
     Route: 058
     Dates: start: 20130613, end: 20140515
  5. REBETOL [Suspect]
     Active Substance: RIBAVIRIN
     Dosage: 800MG/DAY
     Route: 048
  6. VICTRELIS [Suspect]
     Active Substance: BOCEPREVIR
     Dosage: 800 MG, BID
     Route: 048
     Dates: start: 201402
  7. REBETOL [Suspect]
     Active Substance: RIBAVIRIN
     Indication: HEPATITIS C
     Dosage: 1000MG/ DAY
     Route: 048
     Dates: start: 201306
  8. VICTRELIS [Suspect]
     Active Substance: BOCEPREVIR
     Dosage: DAILY DOSAGE: 2400 MG, QD
     Route: 048
     Dates: start: 20130711, end: 20140515

REACTIONS (10)
  - Cough [Unknown]
  - Alopecia [Unknown]
  - Ageusia [Unknown]
  - Surgery [Unknown]
  - Fatigue [Unknown]
  - Explorative laparotomy [Unknown]
  - Malaise [Unknown]
  - Weight decreased [Unknown]
  - Ovarian cyst [Unknown]
  - Anaemia [Recovered/Resolved]

NARRATIVE: CASE EVENT DATE: 20130815
